FAERS Safety Report 4562972-4 (Version None)
Quarter: 2005Q1

REPORT INFORMATION
  Report Type: 
  Country: None (occurrence: None)
  Receive Date: 20050121
  Receipt Date: 20050110
  Transmission Date: 20050727
  Serious: Yes (Hospitalization, Other)
  Sender: FDA-Public Use
  Company Number: 2004053305

PATIENT
  Age: 73 Year
  Sex: Female
  Weight: 77.9 kg

DRUGS (16)
  1. LIPITOR [Suspect]
     Indication: HYPERCHOLESTEROLAEMIA
     Dosage: 20 MG (20 MG, 1 IN 1 D), ORAL
     Route: 048
     Dates: end: 20020101
  2. ATENOLOL [Concomitant]
  3. BUPIVACAINE [Concomitant]
  4. CEFAZOLIN [Concomitant]
  5. DOCUSATE SODIUM (DOCUSATE SODIUM) [Concomitant]
  6. FUROSEMIDE [Concomitant]
  7. DIMENHYDRINATE [Concomitant]
  8. LORAZEPAM [Concomitant]
  9. MIDAZOLAM HCL [Concomitant]
  10. MORPHINE SULFATE [Concomitant]
  11. ONDANSETRON HCL [Concomitant]
  12. PROPOFOL [Concomitant]
  13. RAMIPRIL [Concomitant]
  14. ACETAMINOPHEN [Concomitant]
  15. CODEINE PHOSPHATE AND ACETAMINOPHEN [Concomitant]
  16. WARFARIN SODIUM [Concomitant]

REACTIONS (7)
  - BLOOD CREATINE PHOSPHOKINASE INCREASED [None]
  - DEPRESSED LEVEL OF CONSCIOUSNESS [None]
  - HEADACHE [None]
  - HYPOTENSION [None]
  - OLIGURIA [None]
  - RENAL FAILURE ACUTE [None]
  - RHABDOMYOLYSIS [None]
